FAERS Safety Report 11048588 (Version 1)
Quarter: 2015Q2

REPORT INFORMATION
  Report Type: Spontaneous
  Country: PH (occurrence: PH)
  Receive Date: 20150420
  Receipt Date: 20150420
  Transmission Date: 20150821
  Serious: Yes (Hospitalization)
  Sender: FDA-Public Use
  Company Number: PH-JNJFOC-20150412541

PATIENT
  Age: 31 Year
  Sex: Female

DRUGS (2)
  1. LISTERINE COOL MINT ANTISEPTIC [Suspect]
     Active Substance: EUCALYPTOL\MENTHOL\METHYL SALICYLATE\THYMOL
     Indication: DENTAL DISORDER PROPHYLAXIS
     Route: 050
     Dates: start: 201410, end: 20141223
  2. LISTERINE COOL MINT ANTISEPTIC [Suspect]
     Active Substance: EUCALYPTOL\MENTHOL\METHYL SALICYLATE\THYMOL
     Indication: DENTAL DISORDER PROPHYLAXIS
     Route: 050
     Dates: start: 20150107, end: 20150107

REACTIONS (5)
  - Lymphadenitis [Recovered/Resolved]
  - Dysgeusia [Not Recovered/Not Resolved]
  - Product quality issue [None]
  - Oropharyngeal pain [Recovered/Resolved]
  - Cough [Recovered/Resolved]

NARRATIVE: CASE EVENT DATE: 20150108
